FAERS Safety Report 21446895 (Version 1)
Quarter: 2022Q4

REPORT INFORMATION
  Report Type: Spontaneous
  Country: US (occurrence: None)
  Receive Date: 20221011
  Receipt Date: 20221011
  Transmission Date: 20230113
  Serious: Yes (Hospitalization)
  Sender: FDA-Public Use
  Company Number: None

PATIENT
  Sex: Female

DRUGS (1)
  1. CAPECITABINE [Suspect]
     Active Substance: CAPECITABINE
     Indication: Breast cancer female
     Dosage: 1500MG 2 WEEKS ON, 1 WEEK OFF ORAL?
     Route: 048
     Dates: start: 20220902

REACTIONS (3)
  - Dry skin [None]
  - Constipation [None]
  - Thrombosis [None]
